FAERS Safety Report 5029729-1 (Version None)
Quarter: 2006Q2

REPORT INFORMATION
  Report Type: 
  Country: None (occurrence: None)
  Receive Date: 20060614
  Receipt Date: 20060607
  Transmission Date: 20061013
  Serious: Yes (Other)
  Sender: FDA-Public Use
  Company Number: MYVW-PR-0606S-0034

PATIENT
  Age: 50 Year
  Sex: Male

DRUGS (3)
  1. MYOVIEW [Suspect]
     Indication: HAEMOPTYSIS
     Dosage: SINGLE DOSE, I.V.
     Route: 042
     Dates: start: 20051101, end: 20051101
  2. TECHNETIUM (TC99M) GENERATOR (SODIUM PERTECHNETATE TC99M) [Concomitant]
  3. UNSPECIFIED ANTIBIOTIC [Concomitant]

REACTIONS (7)
  - DIARRHOEA [None]
  - FAECES DISCOLOURED [None]
  - HAEMOPTYSIS [None]
  - HYPERSENSITIVITY [None]
  - INTESTINAL HAEMORRHAGE [None]
  - PNEUMONIA [None]
  - VOMITING [None]
